FAERS Safety Report 12342019 (Version 2)
Quarter: 2016Q2

REPORT INFORMATION
  Report Type: Not Available
  Country: IT (occurrence: IT)
  Receive Date: 20160506
  Receipt Date: 20160520
  Transmission Date: 20160815
  Serious: Yes (Other)
  Sender: FDA-Public Use
  Company Number: IT-MUNDIPHARMA DS AND PHARMACOVIGILANCE-GBR-2016-0035919

PATIENT
  Age: 85 Year
  Sex: Male

DRUGS (9)
  1. PEPTAZOL                           /01263204/ [Concomitant]
     Dosage: 40 MG, UNK
     Route: 048
  2. TARGIN COMPRESSA A RILASCIO PROLUNGATO CONTIENE 10MG/5MG [Suspect]
     Active Substance: NALOXONE HYDROCHLORIDE\OXYCODONE HYDROCHLORIDE
     Indication: PRODUCT USED FOR UNKNOWN INDICATION
     Route: 048
  3. RAMIPRIL. [Concomitant]
     Active Substance: RAMIPRIL
     Indication: HYPERTENSION
     Dosage: 5 MG, UNK
     Route: 048
  4. FUROSEMIDE. [Concomitant]
     Active Substance: FUROSEMIDE
     Dosage: 25 MG, UNK
     Route: 048
  5. RANEXA [Concomitant]
     Active Substance: RANOLAZINE
     Dosage: 375 MG, UNK
     Route: 048
  6. LEVOPRAID                          /00314301/ [Concomitant]
     Active Substance: SULPIRIDE
     Dosage: UNK MG/ML, UNK
     Route: 048
  7. ISOSORBIDE MONONITRATE. [Concomitant]
     Active Substance: ISOSORBIDE MONONITRATE
     Dosage: 40 MG, UNK
     Route: 048
  8. CLEXANE T [Concomitant]
     Active Substance: ENOXAPARIN SODIUM
     Dosage: 6000 IU, UNK
     Route: 058
  9. NOVONORM [Concomitant]
     Active Substance: REPAGLINIDE
     Indication: DIABETES MELLITUS
     Dosage: 0.5 MG, UNK

REACTIONS (2)
  - Abdominal pain upper [Recovering/Resolving]
  - Oedema peripheral [Recovering/Resolving]

NARRATIVE: CASE EVENT DATE: 20160329
